FAERS Safety Report 4314346-9 (Version None)
Quarter: 2004Q1

REPORT INFORMATION
  Report Type: 
  Country: None (occurrence: None)
  Receive Date: 20040308
  Receipt Date: 20040227
  Transmission Date: 20041129
  Serious: Yes (Hospitalization)
  Sender: FDA-Public Use
  Company Number: 2004US000244

PATIENT
  Age: 32 Year
  Sex: Male

DRUGS (1)
  1. AMBISOME [Suspect]
     Indication: MENINGITIS CRYPTOCOCCAL
     Dosage: 3.00 MG/KG, UID/QD, INTRAVENOUS
     Route: 042
     Dates: start: 20040110, end: 20040220

REACTIONS (1)
  - VITH NERVE PARALYSIS [None]
